FAERS Safety Report 8731434 (Version 2)
Quarter: 2012Q4

REPORT INFORMATION
  Report Type: 
  Country: ES (occurrence: ES)
  Receive Date: 20120820
  Receipt Date: 20120831
  Transmission Date: 20130627
  Serious: Yes (Other)
  Sender: FDA-Public Use
  Company Number: ES-BAYER-2012-081044

PATIENT
  Age: 22 Year
  Sex: Male

DRUGS (4)
  1. NEXAVAR [Suspect]
     Indication: ANGIOSARCOMA
     Dosage: 400 mg, BID
     Route: 048
     Dates: start: 200910
  2. NEXAVAR [Suspect]
     Indication: ANGIOSARCOMA
     Dosage: 200 mg, BID
     Route: 048
     Dates: start: 2009
  3. NEXAVAR [Suspect]
     Indication: ANGIOSARCOMA
     Dosage: 200 mg, every 36 hours
     Route: 048
     Dates: start: 201101
  4. INSULIN [INSULIN] [Concomitant]
     Indication: TYPE 1 DIABETES MELLITUS

REACTIONS (8)
  - Mucosal inflammation [Recovering/Resolving]
  - Erythema multiforme [Recovering/Resolving]
  - Palmar-plantar erythrodysaesthesia syndrome [Recovering/Resolving]
  - Erythema multiforme [Recovered/Resolved]
  - Palmar-plantar erythrodysaesthesia syndrome [Recovering/Resolving]
  - Alopecia [Recovered/Resolved]
  - Mucosal inflammation [Recovered/Resolved]
  - Palmar-plantar erythrodysaesthesia syndrome [Not Recovered/Not Resolved]
